FAERS Safety Report 6378028-4 (Version None)
Quarter: 2009Q3

REPORT INFORMATION
  Report Type: 
  Country: None (occurrence: None)
  Receive Date: 20090925
  Receipt Date: 20090914
  Transmission Date: 20100115
  Serious: Yes (Death, Hospitalization, Other)
  Sender: FDA-Public Use
  Company Number: CH-GENENTECH-290933

PATIENT
  Age: 66 Year
  Sex: Female

DRUGS (7)
  1. MABTHERA [Suspect]
     Indication: ACUTE MYELOID LEUKAEMIA
     Route: 065
  2. AMSIDYL [Suspect]
     Indication: ACUTE MYELOID LEUKAEMIA
     Route: 065
  3. CYTARABINE [Suspect]
     Indication: ACUTE MYELOID LEUKAEMIA
     Route: 065
  4. IMIPENEM [Suspect]
     Indication: SEPSIS
     Dosage: 1 G, Q6H
     Route: 065
  5. VANCOMYCIN [Suspect]
     Indication: SEPSIS
     Route: 065
  6. LEVOFLOXACIN [Suspect]
     Indication: SEPSIS
     Route: 048
  7. METRONIDAZOLE [Suspect]
     Indication: SEPSIS
     Route: 065

REACTIONS (5)
  - MULTI-ORGAN FAILURE [None]
  - NEUTROPENIC INFECTION [None]
  - SEPTIC SHOCK [None]
  - STAPHYLOCOCCAL SEPSIS [None]
  - TOXIC ENCEPHALOPATHY [None]
